FAERS Safety Report 7363733-3 (Version None)
Quarter: 2011Q1

REPORT INFORMATION
  Report Type: 
  Country: None (occurrence: None)
  Receive Date: 20110321
  Receipt Date: 20110310
  Transmission Date: 20110831
  Serious: Yes (Death, Other)
  Sender: FDA-Public Use
  Company Number: US-BAXTER-2011BH005240

PATIENT
  Age: 66 Year
  Sex: Male

DRUGS (1)
  1. DIANEAL [Suspect]
     Indication: PERITONEAL DIALYSIS
     Route: 033
     Dates: end: 20110228

REACTIONS (5)
  - RESPIRATORY FAILURE [None]
  - OEDEMA [None]
  - FAILURE TO THRIVE [None]
  - RENAL FAILURE [None]
  - CEREBROVASCULAR ACCIDENT [None]
